FAERS Safety Report 4450753-1 (Version None)
Quarter: 2004Q3

REPORT INFORMATION
  Report Type: 
  Country: None (occurrence: None)
  Receive Date: 20040910
  Receipt Date: 20040910
  Transmission Date: 20050211
  Serious: Yes (Hospitalization)
  Sender: FDA-Public Use
  Company Number: None

PATIENT
  Age: 50 Year
  Sex: Female
  Weight: 68.9467 kg

DRUGS (6)
  1. CYCLOPHOSPHAMIDE [Suspect]
     Indication: BREAST CANCER
     Dosage: 600MG/M2
     Route: 042
     Dates: start: 19950504, end: 19950706
  2. TAXOL [Suspect]
     Indication: BREAST CANCER
     Dosage: 175 MG/M2 IV Q 3 WK X 4
     Route: 042
     Dates: start: 19950727, end: 19950928
  3. DOXORUBICIN [Suspect]
     Indication: BREAST CANCER
     Dosage: 60 MG/M2 IV
     Route: 042
     Dates: start: 19950504, end: 19950706
  4. TAGAMENT [Concomitant]
  5. BENADRYL [Concomitant]
  6. DXM [Concomitant]

REACTIONS (2)
  - NEOPLASM MALIGNANT [None]
  - OVARIAN CANCER [None]
